FAERS Safety Report 17968214 (Version 1)
Quarter: 2020Q3

REPORT INFORMATION
  Report Type: Spontaneous
  Country: US (occurrence: US)
  Receive Date: 20200701
  Receipt Date: 20200701
  Transmission Date: 20201103
  Serious: No
  Sender: FDA-Public Use
  Company Number: None

PATIENT
  Age: 6 Year
  Sex: Female
  Weight: 17.1 kg

DRUGS (1)
  1. MONTELUKAST [Suspect]
     Active Substance: MONTELUKAST SODIUM
     Indication: SEASONAL ALLERGY
     Dates: start: 20180202, end: 20200513

REACTIONS (5)
  - Withdrawal syndrome [None]
  - Formication [None]
  - Mental disorder [None]
  - Throat irritation [None]
  - Headache [None]

NARRATIVE: CASE EVENT DATE: 20200114
